FAERS Safety Report 7146189-5 (Version None)
Quarter: 2010Q4

REPORT INFORMATION
  Report Type: 
  Country: None (occurrence: None)
  Receive Date: 20101208
  Receipt Date: 20101125
  Transmission Date: 20110411
  Serious: Yes (Other)
  Sender: FDA-Public Use
  Company Number: PHHY2010BR80461

PATIENT
  Sex: Female
  Weight: 83 kg

DRUGS (3)
  1. AMLODIPINE BESYLATE AND VALSARTAN [Suspect]
     Indication: HYPERTENSION
     Dosage: 80/5MG, 1 TABLET A DAY
     Route: 048
     Dates: start: 19960101
  2. LANSOPRAZOLE [Concomitant]
     Dosage: 30MG  1 TABLET A DAY
     Route: 048
     Dates: start: 20100701
  3. METFORMIN [Concomitant]
     Indication: DIABETES MELLITUS
     Dosage: 500MG, 1 TABLET A DAY
     Route: 048
     Dates: start: 20090101

REACTIONS (7)
  - CHILLS [None]
  - DEAFNESS [None]
  - DIARRHOEA [None]
  - HYPERHIDROSIS [None]
  - MALAISE [None]
  - VIRAL INFECTION [None]
  - VOMITING [None]
